FAERS Safety Report 14859411 (Version 7)
Quarter: 2020Q3

REPORT INFORMATION
  Report Type: Report from Study
  Country: CR (occurrence: CR)
  Receive Date: 20180508
  Receipt Date: 20200715
  Transmission Date: 20201102
  Serious: Yes (Other)
  Sender: FDA-Public Use
  Company Number: PHHY2018CR017244

PATIENT
  Age: 67 Year
  Sex: Female
  Weight: 64 kg

DRUGS (9)
  1. GLICLAZIDE [Concomitant]
     Active Substance: GLICLAZIDE
     Indication: PRODUCT USED FOR UNKNOWN INDICATION
     Dosage: 80 MG, UNK
     Route: 065
  2. IRBESARTAN. [Suspect]
     Active Substance: IRBESARTAN
     Indication: PRODUCT USED FOR UNKNOWN INDICATION
     Dosage: 2 DF, UNK
     Route: 048
  3. GLIBENCLAMIDE [Concomitant]
     Active Substance: GLYBURIDE
     Indication: DIABETES MELLITUS
     Dosage: 1 DF, (1 TABLET ORALLY IN AM AND 1 TABLET ORALLY IN PM)
     Route: 048
  4. IRBESARTAN. [Suspect]
     Active Substance: IRBESARTAN
     Dosage: 150 MG, BID
     Route: 065
  5. SANDOSTATIN LAR DEPOT [Suspect]
     Active Substance: OCTREOTIDE ACETATE
  6. SANDOSTATIN LAR DEPOT [Suspect]
     Active Substance: OCTREOTIDE ACETATE
     Indication: HEPATIC NEOPLASM
     Dosage: 20 MG, QMO
     Route: 065
     Dates: start: 2013
  7. SANDOSTATIN LAR DEPOT [Suspect]
     Active Substance: OCTREOTIDE ACETATE
     Dosage: 30 MG, QMO
     Route: 065
     Dates: start: 20131128, end: 20200417
  8. METFORMIN [Concomitant]
     Active Substance: METFORMIN HYDROCHLORIDE
     Indication: DIABETES MELLITUS
     Dosage: 4 DF, (DURING DAY)
     Route: 048
  9. AMLODIPIN [Concomitant]
     Active Substance: AMLODIPINE BESYLATE
     Indication: PRODUCT USED FOR UNKNOWN INDICATION
     Dosage: 2 DF, UNK (AM)
     Route: 065

REACTIONS (15)
  - Benign neoplasm of thyroid gland [Unknown]
  - Depression [Unknown]
  - Abdominal pain [Unknown]
  - Depressed mood [Unknown]
  - Hypertension [Unknown]
  - Dry mouth [Unknown]
  - Pancreatic disorder [Unknown]
  - Hernia [Unknown]
  - Blood pressure increased [Unknown]
  - Heart rate increased [Unknown]
  - Arrhythmia [Unknown]
  - Blood glucose increased [Unknown]
  - Accidental exposure to product [Unknown]
  - Neoplasm malignant [Recovered/Resolved]
  - Feeling abnormal [Unknown]
